FAERS Safety Report 6081682-8 (Version None)
Quarter: 2009Q1

REPORT INFORMATION
  Report Type: 
  Country: None (occurrence: None)
  Receive Date: 20090123
  Receipt Date: 20080826
  Transmission Date: 20090719
  Serious: Yes (Hospitalization)
  Sender: FDA-Public Use
  Company Number: WAES 0808USA04764

PATIENT
  Age: 28 Year
  Sex: Male

DRUGS (1)
  1. TAB DECADRON (DEXAMETHASONE) UNK [Suspect]
     Dosage: UNK UNK PO
     Route: 048

REACTIONS (3)
  - HEADACHE [None]
  - HYPERGLYCAEMIA [None]
  - NAUSEA [None]
